FAERS Safety Report 4533157-2 (Version None)
Quarter: 2005Q1

REPORT INFORMATION
  Report Type: 
  Country: None (occurrence: None)
  Receive Date: 20041206
  Receipt Date: 20041013
  Transmission Date: 20050727
  Serious: No
  Sender: FDA-Public Use
  Company Number: USA041081040

PATIENT
  Age: 56 Year
  Sex: Female
  Weight: 97 kg

DRUGS (8)
  1. CYMBALTA [Suspect]
     Indication: DEPRESSION
     Dosage: 60 MG/1DAY
  2. SERZONE [Concomitant]
  3. DIAZEPAM [Concomitant]
  4. INSULIN [Concomitant]
  5. ACTOS [Concomitant]
  6. LIPITOR [Concomitant]
  7. PRINIVIL [Concomitant]
  8. VERAPAMIL [Concomitant]

REACTIONS (5)
  - CHEST DISCOMFORT [None]
  - CRYING [None]
  - DYSPEPSIA [None]
  - HYPERSOMNIA [None]
  - INSOMNIA [None]
